FAERS Safety Report 21357813 (Version 1)
Quarter: 2022Q3

REPORT INFORMATION
  Report Type: Spontaneous
  Country: CN (occurrence: CN)
  Receive Date: 20220921
  Receipt Date: 20220921
  Transmission Date: 20221026
  Serious: Yes (Other)
  Sender: FDA-Public Use
  Company Number: CN-JNJFOC-20220927883

PATIENT
  Age: 51 Year
  Sex: Male
  Weight: 65 kg

DRUGS (6)
  1. IMODIUM [Suspect]
     Active Substance: LOPERAMIDE HYDROCHLORIDE
     Indication: Colitis
     Dosage: 2 MG*12 CAPSULES/BOX
     Route: 048
  2. IMODIUM [Suspect]
     Active Substance: LOPERAMIDE HYDROCHLORIDE
     Indication: Diarrhoea
     Route: 048
  3. IMODIUM [Suspect]
     Active Substance: LOPERAMIDE HYDROCHLORIDE
     Indication: Abdominal pain
  4. OFLOXACIN [Concomitant]
     Active Substance: OFLOXACIN
  5. NORFLOXACIN [Concomitant]
     Active Substance: NORFLOXACIN
  6. BIFICO [Concomitant]

REACTIONS (2)
  - Drug dependence [Unknown]
  - Off label use [Unknown]
